FAERS Safety Report 4847664-6 (Version None)
Quarter: 2005Q4

REPORT INFORMATION
  Report Type: 
  Country: None (occurrence: None)
  Receive Date: 20051205
  Receipt Date: 20051121
  Transmission Date: 20060501
  Serious: Yes (Other)
  Sender: FDA-Public Use
  Company Number: 2005123042

PATIENT
  Age: 60 Year
  Sex: Male
  Weight: 58 kg

DRUGS (6)
  1. ALDACTONE [Suspect]
     Indication: PRIMARY HYPERALDOSTERONISM
     Dosage: SEE IMAGE
     Route: 048
     Dates: start: 20050509, end: 20050614
  2. ALDACTONE [Suspect]
     Indication: PRIMARY HYPERALDOSTERONISM
     Dosage: SEE IMAGE
     Route: 048
     Dates: start: 20050615, end: 20050712
  3. ALDACTONE [Suspect]
     Indication: PRIMARY HYPERALDOSTERONISM
     Dosage: SEE IMAGE
     Route: 048
     Dates: start: 20050713, end: 20050821
  4. ALDACTONE [Suspect]
     Indication: PRIMARY HYPERALDOSTERONISM
     Dosage: SEE IMAGE
     Route: 048
     Dates: start: 20050822, end: 20050912
  5. NORAVSC (AMLODIPINE) [Concomitant]
  6. SLOW-K [Concomitant]

REACTIONS (3)
  - ANGINA UNSTABLE [None]
  - CORONARY ARTERY STENOSIS [None]
  - HYPERCALCAEMIA [None]
